FAERS Safety Report 22350712 (Version 4)
Quarter: 2023Q4

REPORT INFORMATION
  Report Type: Spontaneous
  Country: US (occurrence: US)
  Receive Date: 20230522
  Receipt Date: 20231201
  Transmission Date: 20240110
  Serious: Yes (Death, Other)
  Sender: FDA-Public Use
  Company Number: US-PFIZER INC-PV202300087027

PATIENT
  Age: 78 Year
  Sex: Male
  Weight: 83.91 kg

DRUGS (1)
  1. VYNDAMAX [Suspect]
     Active Substance: TAFAMIDIS
     Indication: Amyloidosis
     Dosage: 61MG CAPSULE ONCE A DAY AT NOON
     Route: 048
     Dates: start: 2023

REACTIONS (4)
  - Death [Fatal]
  - Parkinson^s disease [Unknown]
  - Hypoacusis [Unknown]
  - Dysphagia [Unknown]

NARRATIVE: CASE EVENT DATE: 20231101
